FAERS Safety Report 20395777 (Version 1)
Quarter: 2022Q1

REPORT INFORMATION
  Report Type: Other
  Country: JP (occurrence: None)
  Receive Date: 20220130
  Receipt Date: 20220130
  Transmission Date: 20220423
  Serious: Yes (Hospitalization, Other)
  Sender: FDA-Public Use
  Company Number: JP-Inventia-000167

PATIENT
  Age: 82 Year
  Sex: Male

DRUGS (5)
  1. OLMESARTAN [Suspect]
     Active Substance: OLMESARTAN
     Indication: Hyperuricaemia
     Dosage: 20 MG TWICE DAILY
     Route: 048
  2. ALTEPLASE [Suspect]
     Active Substance: ALTEPLASE
     Indication: Cerebral infarction
     Dosage: INTRAVENOUS RT-PA INJECTION
     Route: 042
  3. NIFEDIPINE [Suspect]
     Active Substance: NIFEDIPINE
     Indication: Product used for unknown indication
     Dosage: 20 MG ONCE DAILY, TWICE DAILY AFTER BREAKFAST AND DINNER.
     Route: 048
  4. FEBUXOSTAT [Concomitant]
     Active Substance: FEBUXOSTAT
     Indication: Product used for unknown indication
     Dosage: 20 MG ONCE DAILY AFTER BREAKFAST
     Route: 048
  5. OLMESARTAN [Suspect]
     Active Substance: OLMESARTAN
     Indication: Hypertension
     Dosage: 20 MG TWICE DAILY AFTER BREAKFAST AND DINNER
     Route: 048

REACTIONS (3)
  - Eyelid oedema [Recovered/Resolved]
  - Dyspnoea [Recovered/Resolved]
  - Angioedema [Recovered/Resolved]
